FAERS Safety Report 20136585 (Version 1)
Quarter: 2021Q4

REPORT INFORMATION
  Report Type: Spontaneous
  Country: US (occurrence: US)
  Receive Date: 20211201
  Receipt Date: 20211201
  Transmission Date: 20220303
  Serious: No
  Sender: FDA-Public Use
  Company Number: US-MYLANLABS-2021M1087681

PATIENT
  Age: 67 Year
  Sex: Male
  Weight: 140.61 kg

DRUGS (2)
  1. FENTANYL TRANSDERMAL SYSTEM [Suspect]
     Active Substance: FENTANYL
     Indication: Pain in extremity
     Dosage: 12 MICROGRAM, Q2W
     Route: 062
     Dates: start: 20211104, end: 20211114
  2. GABAPENTIN [Concomitant]
     Active Substance: GABAPENTIN
     Indication: Neuralgia
     Dosage: 800 MILLIGRAM, Q3D

REACTIONS (2)
  - Expired product administered [Recovered/Resolved]
  - No adverse event [Unknown]

NARRATIVE: CASE EVENT DATE: 20211104
